FAERS Safety Report 5710044-5 (Version None)
Quarter: 2008Q2

REPORT INFORMATION
  Report Type: 
  Country: None (occurrence: None)
  Receive Date: 20080418
  Receipt Date: 20071005
  Transmission Date: 20081010
  Serious: Yes (Other)
  Sender: FDA-Public Use
  Company Number: US-ASTRAZENECA-2007UW23246

PATIENT
  Sex: Male

DRUGS (2)
  1. METOPROLOL SUCCINATE EXTENDED RELEASE [Suspect]
     Route: 048
  2. PROCARDIA XL [Interacting]

REACTIONS (3)
  - DIZZINESS [None]
  - DRUG INTERACTION [None]
  - HYPOTENSION [None]
